FAERS Safety Report 16155475 (Version 1)
Quarter: 2019Q2

REPORT INFORMATION
  Report Type: Spontaneous
  Country: IT (occurrence: IT)
  Receive Date: 20190404
  Receipt Date: 20190404
  Transmission Date: 20190711
  Serious: Yes (Disabling)
  Sender: FDA-Public Use
  Company Number: IT-ROCHE-2295536

PATIENT
  Age: 54 Year
  Sex: Female

DRUGS (1)
  1. BONVIVA [Suspect]
     Active Substance: IBANDRONATE SODIUM
     Indication: RHEUMATOID ARTHRITIS
     Route: 048
     Dates: start: 20120601, end: 20150101

REACTIONS (2)
  - Osteonecrosis of jaw [Not Recovered/Not Resolved]
  - Bone fistula [Not Recovered/Not Resolved]

NARRATIVE: CASE EVENT DATE: 20150101
